FAERS Safety Report 16662088 (Version 2)
Quarter: 2020Q1

REPORT INFORMATION
  Report Type: Report from Study
  Country: US (occurrence: US)
  Receive Date: 20190802
  Receipt Date: 20200129
  Transmission Date: 20200409
  Serious: No
  Sender: FDA-Public Use
  Company Number: US-EXELIXIS-CABO-19019053

PATIENT
  Age: 68 Year
  Sex: Male

DRUGS (14)
  1. MAGNESIUM [Concomitant]
     Active Substance: MAGNESIUM
  2. BISOPROLOL [Concomitant]
     Active Substance: BISOPROLOL
  3. BENAZEPRIL [Concomitant]
     Active Substance: BENAZEPRIL HYDROCHLORIDE
  4. FLUDROCORTISONE [Concomitant]
     Active Substance: FLUDROCORTISONE
  5. NAMZARIC [Concomitant]
     Active Substance: DONEPEZIL HYDROCHLORIDE\MEMANTINE HYDROCHLORIDE
  6. QUETIAPINE. [Concomitant]
     Active Substance: QUETIAPINE
  7. LOVASTATIN. [Concomitant]
     Active Substance: LOVASTATIN
  8. FEROSUL [Concomitant]
     Active Substance: FERROUS SULFATE
  9. HYDROCORTISONE. [Concomitant]
     Active Substance: HYDROCORTISONE
  10. CABOMETYX [Suspect]
     Active Substance: CABOZANTINIB S-MALATE
     Indication: MALIGNANT NEOPLASM OF RENAL PELVIS
     Dosage: 60 MG, QD (TAKE 3 TABLETS OF 20 MG)
     Route: 048
     Dates: start: 20190201
  11. CLONAZEPAM. [Concomitant]
     Active Substance: CLONAZEPAM
  12. BAYER LOW DOSE [Concomitant]
     Active Substance: ASPIRIN
  13. TRAMADOL. [Concomitant]
     Active Substance: TRAMADOL
  14. AMITRIPTYLINE [Concomitant]
     Active Substance: AMITRIPTYLINE

REACTIONS (2)
  - Diarrhoea [Recovering/Resolving]
  - Off label use [Unknown]

NARRATIVE: CASE EVENT DATE: 20190201
